FAERS Safety Report 6696360-1 (Version None)
Quarter: 2010Q2

REPORT INFORMATION
  Report Type: 
  Country: None (occurrence: None)
  Receive Date: 20100421
  Receipt Date: 20100414
  Transmission Date: 20101027
  Serious: Yes (Death, Other)
  Sender: FDA-Public Use
  Company Number: 2008JP004821

PATIENT
  Age: 59 Year
  Weight: 68 kg

DRUGS (7)
  1. PROGRAF [Suspect]
     Indication: STEM CELL TRANSPLANT
  2. L-PAM (MELPHALAN) FORMULATION UNKNOWN [Suspect]
     Indication: BONE MARROW CONDITIONING REGIMEN
  3. L-PAM REGIMEN #2 [Suspect]
     Indication: BONE MARROW CONDITIONING REGIMEN
     Dosage: 70 MG/M2
  4. METHOTREXATE [Concomitant]
  5. FLUDARABINE PHOSPHATE [Concomitant]
  6. HYDROXYUREA [Concomitant]
  7. PREDNISOLONE [Concomitant]

REACTIONS (8)
  - BACTERIAL INFECTION [None]
  - DISEASE PROGRESSION [None]
  - INTERSTITIAL LUNG DISEASE [None]
  - LUNG INFECTION PSEUDOMONAL [None]
  - NO THERAPEUTIC RESPONSE [None]
  - PNEUMONIA [None]
  - SEPSIS [None]
  - SPLENOMEGALY [None]
